FAERS Safety Report 9511589 (Version 6)
Quarter: 2013Q4

REPORT INFORMATION
  Report Type: Report from Study
  Country: BR (occurrence: BR)
  Receive Date: 20130910
  Receipt Date: 20131129
  Transmission Date: 20140711
  Serious: Yes (Other)
  Sender: FDA-Public Use
  Company Number: PHHY2013BR098611

PATIENT
  Sex: Female
  Weight: 58 kg

DRUGS (6)
  1. GALVUS MET [Suspect]
     Indication: DIABETES MELLITUS MANAGEMENT
     Dosage: 2 DF (850/50MG), DAILY
     Route: 048
     Dates: start: 20130904, end: 20130905
  2. GALVUS MET [Suspect]
     Dosage: UNK (850/50MG), UNK
  3. GALVUS [Suspect]
     Indication: DIABETES MELLITUS MANAGEMENT
     Dosage: 2 DF (50MG), DAILY
     Route: 048
  4. DIOVAN AMLO FIX [Suspect]
     Indication: HYPERTENSION
     Dosage: 1 DF (320/10MG), DAILY
     Route: 048
  5. ROSUVASTATIN CALCIUM [Concomitant]
     Indication: BLOOD CHOLESTEROL ABNORMAL
     Dosage: UNK (10MG), UNK
  6. ROSUVASTATIN CALCIUM [Concomitant]
     Dosage: 0.5 DF (10MG), UNK
     Route: 048

REACTIONS (5)
  - Liver disorder [Not Recovered/Not Resolved]
  - Visual acuity reduced [Not Recovered/Not Resolved]
  - Diabetes mellitus [Not Recovered/Not Resolved]
  - Diabetes mellitus inadequate control [Not Recovered/Not Resolved]
  - Blood glucose abnormal [Not Recovered/Not Resolved]
